FAERS Safety Report 11078513 (Version 1)
Quarter: 2015Q2

REPORT INFORMATION
  Report Type: Spontaneous
  Country: FR (occurrence: FR)
  Receive Date: 20150430
  Receipt Date: 20150430
  Transmission Date: 20150821
  Serious: Yes (Death, Hospitalization, Other)
  Sender: FDA-Public Use
  Company Number: FR-CELGENE-FRA-2015044671

PATIENT
  Age: 60 Year
  Sex: Male

DRUGS (1)
  1. VIDAZA [Suspect]
     Active Substance: AZACITIDINE
     Indication: MYELODYSPLASTIC SYNDROME
     Dosage: 75 MILLIGRAM/SQ. METER
     Route: 065
     Dates: start: 201406

REACTIONS (14)
  - Acute respiratory distress syndrome [Unknown]
  - Infectious colitis [Unknown]
  - Hypotension [Unknown]
  - Neutropenia [Unknown]
  - Sepsis [Fatal]
  - Lung infiltration [Unknown]
  - Thrombocytopenia [Unknown]
  - Leukopenia [Unknown]
  - Haemoptysis [Unknown]
  - Anaemia [Unknown]
  - Melaena [Unknown]
  - Aplasia [Unknown]
  - Mucosal inflammation [Unknown]
  - Productive cough [Unknown]

NARRATIVE: CASE EVENT DATE: 2014
